FAERS Safety Report 11280086 (Version 2)
Quarter: 2019Q2

REPORT INFORMATION
  Report Type: Report from Study
  Country: JP (occurrence: JP)
  Receive Date: 20150717
  Receipt Date: 20190531
  Transmission Date: 20190711
  Serious: Yes (Death, Hospitalization, Other)
  Sender: FDA-Public Use
  Company Number: JP-BAYER-2015-376121

PATIENT
  Age: 81 Year
  Sex: Female
  Weight: 44 kg

DRUGS (9)
  1. FUROSEMIDE. [Concomitant]
     Active Substance: FUROSEMIDE
     Dosage: DAILY DOSE 20 MG
     Route: 048
     Dates: end: 20150315
  2. ADEMPAS [Suspect]
     Active Substance: RIOCIGUAT
     Indication: PULMONARY HYPERTENSION
     Dosage: 1 MG, TID
     Route: 048
     Dates: start: 20141217, end: 20141224
  3. SPIRONOLACTONE. [Concomitant]
     Active Substance: SPIRONOLACTONE
     Dosage: DAILY DOSE 50 MG
     Route: 048
     Dates: end: 20150315
  4. TOLVAPTAN [Concomitant]
     Active Substance: TOLVAPTAN
     Dosage: DAILY DOSE 7.5 MG
     Route: 048
     Dates: end: 20150315
  5. ADEMPAS [Suspect]
     Active Substance: RIOCIGUAT
     Indication: PULMONARY HYPERTENSION
     Dosage: 2 MG, TID
     Route: 048
     Dates: start: 20150122, end: 20150204
  6. OXYGEN. [Concomitant]
     Active Substance: OXYGEN
     Indication: PULMONARY HYPERTENSION
     Dosage: UNK
     Route: 045
     Dates: end: 20150316
  7. ADEMPAS [Suspect]
     Active Substance: RIOCIGUAT
     Indication: PULMONARY HYPERTENSION
     Dosage: 1.5 MG, TID
     Route: 048
     Dates: start: 20141225, end: 20150121
  8. WARFARIN POTASSIUM [Concomitant]
     Active Substance: WARFARIN POTASSIUM
     Dosage: DAILY DOSE 1 MG
     Route: 048
     Dates: end: 20150310
  9. ADEMPAS [Suspect]
     Active Substance: RIOCIGUAT
     Indication: PULMONARY HYPERTENSION
     Dosage: 2.5 MG, TID
     Route: 048
     Dates: start: 20150205, end: 20150308

REACTIONS (5)
  - Pulmonary hypertension [None]
  - Melaena [Recovered/Resolved]
  - Anaemia [None]
  - Pulmonary congestion [Fatal]
  - Infection [None]

NARRATIVE: CASE EVENT DATE: 20150305
